FAERS Safety Report 7334587-6 (Version None)
Quarter: 2011Q1

REPORT INFORMATION
  Report Type: 
  Country: None (occurrence: None)
  Receive Date: 20110307
  Receipt Date: 20110107
  Transmission Date: 20110831
  Serious: No
  Sender: FDA-Public Use
  Company Number: A0889119A

PATIENT
  Age: 58 Year
  Sex: Female

DRUGS (5)
  1. REQUIP [Suspect]
     Indication: RESTLESS LEGS SYNDROME
     Dosage: 4MG PER DAY
     Route: 048
     Dates: start: 20050101, end: 20100901
  2. ZOCOR [Concomitant]
  3. ACETAMINOPHEN [Concomitant]
  4. CENTRUM [Concomitant]
  5. LASIX [Concomitant]

REACTIONS (5)
  - MARRIED [None]
  - DEPRESSION [None]
  - WEIGHT INCREASED [None]
  - RESTLESS LEGS SYNDROME [None]
  - SENSATION OF HEAVINESS [None]
